FAERS Safety Report 5249098-1 (Version None)
Quarter: 2007Q1

REPORT INFORMATION
  Report Type: 
  Country: None (occurrence: None)
  Receive Date: 20070228
  Receipt Date: 20060807
  Transmission Date: 20070707
  Serious: No
  Sender: FDA-Public Use
  Company Number: US-GLAXOSMITHKLINE-A0615621A

PATIENT
  Age: 79 Year
  Sex: Female

DRUGS (11)
  1. VALTREX [Suspect]
     Dosage: 1G SINGLE DOSE
     Route: 048
     Dates: start: 20060605, end: 20060605
  2. ZOVIRAX [Suspect]
     Dosage: 400MG THREE TIMES PER DAY
     Route: 048
     Dates: start: 20060608, end: 20060715
  3. ACYCLOVIR [Suspect]
  4. TRAMADOL HCL [Concomitant]
  5. ALBUTEROL [Concomitant]
  6. MUCINEX [Concomitant]
  7. ATACAND [Concomitant]
  8. FUROSEMIDE [Concomitant]
  9. K-DUR 10 [Concomitant]
  10. VITAMINS [Concomitant]
  11. HYDROCORTISONE [Concomitant]

REACTIONS (4)
  - BACK PAIN [None]
  - BREAST ENLARGEMENT [None]
  - DRUG INEFFECTIVE [None]
  - RASH [None]
